FAERS Safety Report 24010029 (Version 2)
Quarter: 2024Q4

REPORT INFORMATION
  Report Type: Report from Study
  Country: CA (occurrence: CA)
  Receive Date: 20240625
  Receipt Date: 20241003
  Transmission Date: 20250115
  Serious: No
  Sender: ABBVIE
  Company Number: CA-ABBVIE-5812982

PATIENT
  Sex: Female

DRUGS (1)
  1. BOTOX [Suspect]
     Active Substance: ONABOTULINUMTOXINA
     Indication: Migraine
     Dosage: TIME INTERVAL: AS NECESSARY: FREQUENCY: EVERY THREE MONTHS
     Route: 030

REACTIONS (1)
  - Cerebral disorder [Not Recovered/Not Resolved]
